FAERS Safety Report 17731331 (Version 1)
Quarter: 2020Q2

REPORT INFORMATION
  Report Type: Spontaneous
  Country: US (occurrence: US)
  Receive Date: 20200430
  Receipt Date: 20200430
  Transmission Date: 20200714
  Serious: No
  Sender: FDA-Public Use
  Company Number: US-AKCEA THERAPEUTICS-2020IS001063

PATIENT

DRUGS (4)
  1. TEGSEDI [Suspect]
     Active Substance: INOTERSEN SODIUM
     Indication: HEREDITARY NEUROPATHIC AMYLOIDOSIS
     Dosage: UNK UNK, QW
     Route: 065
     Dates: end: 20200124
  2. TEGSEDI [Suspect]
     Active Substance: INOTERSEN SODIUM
     Dosage: 142 MG, QW
     Route: 058
     Dates: start: 20200305
  3. TEGSEDI [Suspect]
     Active Substance: INOTERSEN SODIUM
     Dosage: 284 MG, QW
     Route: 058
  4. TEGSEDI [Suspect]
     Active Substance: INOTERSEN SODIUM
     Dosage: 284 MG, UNK
     Route: 058

REACTIONS (13)
  - Chills [Not Recovered/Not Resolved]
  - Fatigue [Unknown]
  - Influenza like illness [Unknown]
  - Vomiting [Not Recovered/Not Resolved]
  - Drug hypersensitivity [Not Recovered/Not Resolved]
  - Skin burning sensation [Unknown]
  - Retching [Not Recovered/Not Resolved]
  - Injection site pruritus [Unknown]
  - Injection site warmth [Unknown]
  - Tremor [Unknown]
  - Nausea [Unknown]
  - Feeling abnormal [Not Recovered/Not Resolved]
  - Injection site erythema [Unknown]
